FAERS Safety Report 23917346 (Version 7)
Quarter: 2024Q4

REPORT INFORMATION
  Report Type: Spontaneous
  Country: JP (occurrence: JP)
  Receive Date: 20240529
  Receipt Date: 20241122
  Transmission Date: 20250115
  Serious: Yes (Hospitalization)
  Sender: NOVARTIS
  Company Number: JP-002147023-NVSJ2024JP006280

PATIENT
  Age: 1 Year
  Sex: Female
  Weight: 10.2 kg

DRUGS (5)
  1. ZOLGENSMA [Suspect]
     Active Substance: ONASEMNOGENE ABEPARVOVEC-XIOI
     Indication: Spinal muscular atrophy
     Dosage: 57.8 ML(1.1X10^14 VG/KG)
     Route: 041
     Dates: start: 20240522, end: 20240522
  2. PREDNISOLONE [Concomitant]
     Active Substance: PREDNISOLONE
     Indication: Platelet count decreased
     Dosage: 1 MG/KG
     Route: 041
     Dates: start: 20240521, end: 20240524
  3. PREDNISOLONE [Concomitant]
     Active Substance: PREDNISOLONE
     Indication: Aspartate aminotransferase increased
     Dosage: 2 MG/KG
     Route: 041
     Dates: start: 20240525, end: 20240530
  4. PREDNISOLONE [Concomitant]
     Active Substance: PREDNISOLONE
     Indication: Alanine aminotransferase increased
     Dosage: 1 MG/KG
     Route: 041
     Dates: start: 20240531, end: 20240602
  5. FAMOTIDINE [Concomitant]
     Active Substance: FAMOTIDINE
     Indication: Product used for unknown indication
     Dosage: 5 MG, BID
     Route: 048
     Dates: start: 20240603

REACTIONS (9)
  - Neutrophil count decreased [Recovered/Resolved]
  - Aspartate aminotransferase increased [Recovered/Resolved]
  - Alanine aminotransferase increased [Recovered/Resolved]
  - Platelet count decreased [Recovered/Resolved]
  - Vomiting [Recovered/Resolved]
  - Pyrexia [Recovered/Resolved]
  - Aspartate aminotransferase increased [Not Recovered/Not Resolved]
  - Alanine aminotransferase increased [Not Recovered/Not Resolved]
  - Blood bilirubin increased [Not Recovered/Not Resolved]

NARRATIVE: CASE EVENT DATE: 20240525
